FAERS Safety Report 8844856 (Version 1)
Quarter: 2012Q4

REPORT INFORMATION
  Report Type: Spontaneous
  Country: US (occurrence: None)
  Receive Date: 20120925
  Receipt Date: 20120925
  Transmission Date: 20130627
  Serious: Yes (Hospitalization)
  Sender: FDA-Public Use
  Company Number: RB-26373-2011

PATIENT
  Age: 29 Year
  Sex: Female

DRUGS (2)
  1. SUBOXONE [Suspect]
     Indication: DRUG DEPENDENCE
     Route: 060
     Dates: start: 20110417, end: 20110417
  2. METHADONE [Suspect]
     Indication: DRUG DEPENDENCE
     Dates: end: 20110415

REACTIONS (2)
  - Drug withdrawal syndrome [None]
  - Off label use [None]
